FAERS Safety Report 5615108-2 (Version None)
Quarter: 2008Q1

REPORT INFORMATION
  Report Type: 
  Country: None (occurrence: None)
  Receive Date: 20080206
  Receipt Date: 20070508
  Transmission Date: 20080703
  Serious: No
  Sender: FDA-Public Use
  Company Number: A0650434A

PATIENT

DRUGS (1)
  1. ARIXTRA [Suspect]
     Indication: DRUG USE FOR UNKNOWN INDICATION
     Dosage: 10MG PER DAY
     Route: 058

REACTIONS (2)
  - DYSPNOEA [None]
  - PRURITUS [None]
